FAERS Safety Report 6440481-5 (Version None)
Quarter: 2009Q4

REPORT INFORMATION
  Report Type: 
  Country: None (occurrence: None)
  Receive Date: 20091113
  Receipt Date: 20091110
  Transmission Date: 20100525
  Serious: No
  Sender: FDA-Public Use
  Company Number: US-B.I. PHARMACEUTICALS,INC./RIDGEFIELD-2009-BP-13153BP

PATIENT
  Sex: Male

DRUGS (2)
  1. SPIRIVA [Suspect]
     Dosage: 18 MCG
     Route: 055
     Dates: start: 20091102
  2. FLOVENT [Concomitant]

REACTIONS (1)
  - DRUG INEFFECTIVE [None]
